FAERS Safety Report 10775745 (Version 2)
Quarter: 2015Q1

REPORT INFORMATION
  Report Type: Spontaneous
  Country: US (occurrence: US)
  Receive Date: 20150209
  Receipt Date: 20150218
  Transmission Date: 20150721
  Serious: Yes (Death, Other)
  Sender: FDA-Public Use
  Company Number: US-009507513-1502USA000954

PATIENT
  Age: 77 Year
  Sex: Male

DRUGS (11)
  1. PROVENTIL [Suspect]
     Active Substance: ALBUTEROL
     Dosage: UNK, PRN
     Route: 055
  2. LEVEMIR [Concomitant]
     Active Substance: INSULIN DETEMIR
     Dosage: UNK, FLEX PEN
  3. FLOMAX [Concomitant]
     Active Substance: TAMSULOSIN HYDROCHLORIDE
     Dosage: UNKNOWN
  4. LUMIGAN [Concomitant]
     Active Substance: BIMATOPROST
     Dosage: UNKNOWN
  5. SYMBICORT [Concomitant]
     Active Substance: BUDESONIDE\FORMOTEROL FUMARATE DIHYDRATE
     Dosage: UNKNOWN
  6. GLIPIZIDE. [Concomitant]
     Active Substance: GLIPIZIDE
     Dosage: UNKNOWN
  7. ZOCOR [Concomitant]
     Active Substance: SIMVASTATIN
     Dosage: UNKNOWN
  8. TIMOLOL MALEATE. [Concomitant]
     Active Substance: TIMOLOL MALEATE
     Dosage: UNKNOWN
  9. AMLODIPINE [Concomitant]
     Active Substance: AMLODIPINE BESYLATE
     Dosage: UNKNOWN
  10. XARELTO [Concomitant]
     Active Substance: RIVAROXABAN
     Dosage: UNKNOWN
  11. METOPROLOL [Concomitant]
     Active Substance: METOPROLOL
     Dosage: UNKNOWN

REACTIONS (1)
  - Acute myocardial infarction [Fatal]

NARRATIVE: CASE EVENT DATE: 20150127
